FAERS Safety Report 23956218 (Version 1)
Quarter: 2024Q2

REPORT INFORMATION
  Report Type: Spontaneous
  Country: US (occurrence: US)
  Receive Date: 20240610
  Receipt Date: 20240610
  Transmission Date: 20240716
  Serious: No
  Sender: FDA-Public Use
  Company Number: US-SA-SAC20240604000116

PATIENT
  Sex: Male

DRUGS (5)
  1. DUPIXENT [Suspect]
     Active Substance: DUPILUMAB
     Indication: Dermatitis atopic
     Dosage: 300 MG, QOW
     Route: 058
     Dates: start: 20221229
  2. ALLOPURINOL [Concomitant]
     Active Substance: ALLOPURINOL
  3. EUCRISA [Concomitant]
     Active Substance: CRISABOROLE
  4. FLUOCINONIDE [Concomitant]
     Active Substance: FLUOCINONIDE
  5. SHINGRIX [Concomitant]
     Active Substance: RECOMBINANT VARICELLA ZOSTER VIRUS (VZV) GLYCOPROTEIN E
     Indication: Immunisation

REACTIONS (2)
  - Influenza like illness [Unknown]
  - Drug ineffective [Unknown]
